FAERS Safety Report 7994325-0 (Version None)
Quarter: 2011Q4

REPORT INFORMATION
  Report Type: 
  Country: None (occurrence: None)
  Receive Date: 20111220
  Receipt Date: 20101110
  Transmission Date: 20120403
  Serious: No
  Sender: FDA-Public Use
  Company Number: US-GLAXOSMITHKLINE-A0891825A

PATIENT
  Age: 61 Year
  Sex: Female

DRUGS (25)
  1. TEKTURNA [Concomitant]
  2. SYNTHROID [Concomitant]
  3. ESTRADIOL [Concomitant]
  4. CLIMARA [Concomitant]
  5. COVERA-HS [Concomitant]
  6. ZOLOFT [Concomitant]
  7. ZOVIRAX [Concomitant]
  8. VICODIN [Concomitant]
  9. RESTORIL [Concomitant]
  10. FIORINAL [Concomitant]
  11. NAPROXEN [Concomitant]
  12. ATIVAN [Concomitant]
  13. DIFLUCAN [Concomitant]
  14. SORIATANE [Suspect]
     Indication: LICHEN PLANUS
     Dosage: 17.5MG PER DAY
     Route: 048
     Dates: start: 20101008
  15. LIPITOR [Concomitant]
  16. PREDNISONE [Concomitant]
  17. NEURONTIN [Concomitant]
  18. PHENERGAN [Concomitant]
  19. DEXLANSOPRAZOLE [Concomitant]
  20. CYMBALTA [Concomitant]
  21. VISTARIL [Concomitant]
  22. ELAVIL [Concomitant]
  23. FLEXERIL [Concomitant]
  24. FOSAMAX [Concomitant]
  25. PROTOPIC [Concomitant]

REACTIONS (1)
  - EPISTAXIS [None]
